FAERS Safety Report 25392060 (Version 14)
Quarter: 2025Q4

REPORT INFORMATION
  Report Type: Report from Study
  Country: EU (occurrence: None)
  Receive Date: 20250603
  Receipt Date: 20251228
  Transmission Date: 20260118
  Serious: Yes (Hospitalization, Other)
  Sender: UCB
  Company Number: EU-UCBSA-2025025494

PATIENT
  Age: 47 Year
  Weight: 72 kg

DRUGS (14)
  1. BIMEKIZUMAB [Suspect]
     Active Substance: BIMEKIZUMAB
     Indication: Hidradenitis
     Dosage: 320 MILLIGRAM, EV 2 WEEKS(QOW)
  2. BIMEKIZUMAB [Suspect]
     Active Substance: BIMEKIZUMAB
     Dosage: 320 MILLIGRAM, EV 2 WEEKS(QOW)
  3. PANTOPRAZOLE SODIUM [Concomitant]
     Active Substance: PANTOPRAZOLE SODIUM
     Indication: Prophylaxis
     Dosage: 20 MILLIGRAM, ONCE DAILY (QD)
  4. BETAMETHASONE DIPROPIONATE\GENTAMICIN SULFATE [Concomitant]
     Active Substance: BETAMETHASONE DIPROPIONATE\GENTAMICIN SULFATE
     Indication: Perichondritis
     Dosage: 1 MILLIGRAM, 2X/DAY (BID)
  5. GANCICLOVIR [Concomitant]
     Active Substance: GANCICLOVIR
     Indication: Keratitis
     Dosage: 1.5 MILLIGRAM PER GRAM, 4X/DAY (QID)
  6. PREDNICARBATE [Concomitant]
     Active Substance: PREDNICARBATE
     Indication: Dermatitis atopic
     Dosage: 0.25 PERCENT, 2X/DAY (BID)
  7. PREDNICARBATE [Concomitant]
     Active Substance: PREDNICARBATE
     Dosage: 2.5 MILLIGRAM, 2X/DAY (BID)
  8. CLINDAMYCIN [Concomitant]
     Active Substance: CLINDAMYCIN
     Indication: Hidradenitis
     Dosage: 600 MILLIGRAM, 3X/DAY (TID)
  9. IBUPROFEN [Concomitant]
     Active Substance: IBUPROFEN
     Indication: Hidradenitis
     Dosage: 400 MILLIGRAM, 3X/DAY (TID)
  10. OCTENIDINHYDROCHLORID [Concomitant]
     Indication: Dermatitis atopic
     Dosage: 0.25 PERCENT, 2X/DAY (BID)
  11. NYSTATIN ACIS CREAM [Concomitant]
     Indication: Hidradenitis
     Dosage: 100000 IE, TWICE A DAY
  12. CLOTRIMAZOLE [Concomitant]
     Active Substance: CLOTRIMAZOLE
     Indication: Intertrigo
     Dosage: 2 PERCENT , 2X/DAY (BID)
  13. OPIPRAMOL [Concomitant]
     Active Substance: OPIPRAMOL
     Indication: Depression
     Dosage: 50 MILLIGRAM, ONCE DAILY (QD)
  14. POLIHEXANID [Concomitant]
     Indication: Hidradenitis
     Dosage: 0.4 MILLIGRAM, ONCE DAILY (QD)

REACTIONS (8)
  - Hidradenitis [Recovered/Resolved]
  - Condition aggravated [Recovered/Resolved]
  - Stomatitis [Recovered/Resolved]
  - Conjunctivitis [Recovered/Resolved]
  - Otitis externa [Recovered/Resolved]
  - Skin candida [Not Recovered/Not Resolved]
  - Intertrigo [Not Recovered/Not Resolved]
  - Abscess [Recovered/Resolved]
